FAERS Safety Report 11966721 (Version 2)
Quarter: 2018Q4

REPORT INFORMATION
  Report Type: Spontaneous
  Country: US (occurrence: US)
  Receive Date: 20160127
  Receipt Date: 20181024
  Transmission Date: 20190204
  Serious: Yes (Hospitalization, Other)
  Sender: FDA-Public Use
  Company Number: PHHY2016US007353

PATIENT
  Age: 52 Year
  Sex: Male

DRUGS (4)
  1. VALACICLOVIR [Suspect]
     Active Substance: VALACYCLOVIR HYDROCHLORIDE
     Indication: HERPES ZOSTER
     Dosage: 1 G, TID
     Route: 065
  2. VALACICLOVIR [Suspect]
     Active Substance: VALACYCLOVIR HYDROCHLORIDE
     Dosage: 3 G, UNK
     Route: 065
  3. ACICLOVIR [Suspect]
     Active Substance: ACYCLOVIR
     Dosage: 600 MG, UNK
     Route: 042
  4. ACICLOVIR [Suspect]
     Active Substance: ACYCLOVIR
     Indication: PROPHYLAXIS
     Dosage: 10 MG/KG, Q12H
     Route: 042

REACTIONS (5)
  - Disorientation [Recovered/Resolved]
  - Neurotoxicity [Recovered/Resolved]
  - Hallucination, auditory [Recovered/Resolved]
  - Somnolence [Recovered/Resolved]
  - Status epilepticus [Recovered/Resolved]
